FAERS Safety Report 9752076 (Version 2)
Quarter: 2013Q4

REPORT INFORMATION
  Report Type: Report from Study
  Country: DE (occurrence: DE)
  Receive Date: 20131213
  Receipt Date: 20131224
  Transmission Date: 20140711
  Serious: Yes (Hospitalization)
  Sender: FDA-Public Use
  Company Number: PHHO2013DE016018

PATIENT
  Sex: 0

DRUGS (10)
  1. BLINDED AFINITOR [Suspect]
     Indication: TUBEROUS SCLEROSIS
     Dosage: CODE NOT BROKEN
     Route: 048
     Dates: start: 20100810
  2. BLINDED NO TREATMENT RECEIVED [Suspect]
     Indication: TUBEROUS SCLEROSIS
     Dosage: CODE NOT BROKEN
     Route: 048
     Dates: start: 20100810
  3. BLINDED PLACEBO [Suspect]
     Indication: TUBEROUS SCLEROSIS
     Dosage: CODE NOT BROKEN
     Route: 048
     Dates: start: 20100810
  4. RASILEZ [Suspect]
     Indication: HYPERTENSION
     Dosage: 150 MG, QD (150X1)
     Dates: start: 20110221, end: 20131205
  5. RASILEZ [Suspect]
     Indication: PROTEINURIA
  6. OMEPRAZOL//OMEPRAZOLE [Concomitant]
     Dosage: 20 MG, (20-MG-0-0)
     Dates: start: 20100729
  7. CARBAMAZEPIN [Concomitant]
     Dosage: 600 MG, (0-0-600MG)
     Dates: start: 20100729
  8. DOXEPIN [Concomitant]
     Dosage: 50 MG, (0-0-50 MG)
     Dates: start: 20100729
  9. KALIUM CHLORID [Concomitant]
     Dosage: (1-0-0)
     Dates: start: 20130606
  10. PERAZIN//PERAZINE DIMALONATE [Concomitant]
     Dosage: 20 MG, (20-0-0)
     Dates: start: 20110712

REACTIONS (1)
  - Syncope [Recovered/Resolved]
